FAERS Safety Report 7157070-X (Version None)
Quarter: 2010Q4

REPORT INFORMATION
  Report Type: 
  Country: None (occurrence: None)
  Receive Date: 20101214
  Receipt Date: 20091229
  Transmission Date: 20110411
  Serious: No
  Sender: FDA-Public Use
  Company Number: US-ASTRAZENECA-2009SE33894

PATIENT
  Age: 62 Year
  Sex: Female
  Weight: 67.1 kg

DRUGS (1)
  1. CRESTOR [Suspect]
     Route: 048
     Dates: start: 20090601

REACTIONS (5)
  - ASTHENIA [None]
  - FATIGUE [None]
  - MYALGIA [None]
  - PALPITATIONS [None]
  - WEIGHT INCREASED [None]
